FAERS Safety Report 4630001-X (Version None)
Quarter: 2005Q2

REPORT INFORMATION
  Report Type: 
  Country: None (occurrence: None)
  Receive Date: 20050408
  Receipt Date: 20050330
  Transmission Date: 20051028
  Serious: Yes (Death)
  Sender: FDA-Public Use
  Company Number: FR-JNJFOC-20050307360

PATIENT
  Sex: Male
  Weight: 85 kg

DRUGS (3)
  1. RISPERDAL [Suspect]
     Indication: SCHIZOAFFECTIVE DISORDER
     Route: 049
     Dates: start: 20040521
  2. STILNOX [Suspect]
     Indication: SCHIZOAFFECTIVE DISORDER
     Route: 049
  3. LYSANXIA [Suspect]
     Indication: SCHIZOAFFECTIVE DISORDER
     Route: 049

REACTIONS (2)
  - COMPLETED SUICIDE [None]
  - GASTROINTESTINAL HAEMORRHAGE [None]
